FAERS Safety Report 7998330-X (Version None)
Quarter: 2011Q4

REPORT INFORMATION
  Report Type: 
  Country: None (occurrence: None)
  Receive Date: 20111221
  Receipt Date: 20110718
  Transmission Date: 20120403
  Serious: No
  Sender: FDA-Public Use
  Company Number: US-GLAXOSMITHKLINE-A0937077A

PATIENT
  Age: 59 Year
  Sex: Female

DRUGS (11)
  1. SYNTHROID [Concomitant]
  2. GAVISCON [Concomitant]
  3. CYMBALTA [Concomitant]
  4. KLONOPIN [Concomitant]
  5. BENTYL [Concomitant]
  6. CRESTOR [Concomitant]
  7. LOVAZA [Suspect]
     Indication: BLOOD TRIGLYCERIDES INCREASED
     Dosage: 2G PER DAY
     Route: 048
     Dates: start: 20110709
  8. TOPAMAX [Concomitant]
  9. JANUVIA [Concomitant]
  10. GLUMETZA [Concomitant]
  11. ACIPHEX [Concomitant]

REACTIONS (1)
  - DYSPEPSIA [None]
